FAERS Safety Report 19415637 (Version 2)
Quarter: 2021Q3

REPORT INFORMATION
  Report Type: Spontaneous
  Country: US (occurrence: US)
  Receive Date: 20210614
  Receipt Date: 20210816
  Transmission Date: 20211014
  Serious: No
  Sender: FDA-Public Use
  Company Number: US-SUNOVION-2021SUN001835

PATIENT
  Age: 74 Year
  Sex: Female

DRUGS (1)
  1. LONHALA MAGNAIR [Suspect]
     Active Substance: GLYCOPYRROLATE
     Dosage: 25 ?G
     Route: 055
     Dates: end: 20210519

REACTIONS (6)
  - Malaise [Unknown]
  - Fall [Not Recovered/Not Resolved]
  - Device breakage [Unknown]
  - Product dose omission issue [Unknown]
  - Device issue [Unknown]
  - Arthropathy [Not Recovered/Not Resolved]
